FAERS Safety Report 7444485-5 (Version None)
Quarter: 2011Q2

REPORT INFORMATION
  Report Type: 
  Country: None (occurrence: None)
  Receive Date: 20110429
  Receipt Date: 20101012
  Transmission Date: 20111010
  Serious: Yes (Hospitalization, Other)
  Sender: FDA-Public Use
  Company Number: US-BAYER-201021607NA

PATIENT
  Age: 25 Year
  Sex: Female
  Weight: 61.224 kg

DRUGS (23)
  1. DROSPIRENONE AND ETHINYL ESTRADIOL [Suspect]
     Indication: CONTRACEPTION
     Dosage: UNK
     Dates: start: 20090101, end: 20100101
  2. PSEUDOVENT [Concomitant]
     Dosage: 400 MG, UNK
     Route: 048
     Dates: start: 20060903
  3. REQUIP [Concomitant]
     Dosage: 1 MG, UNK
     Dates: start: 20070115
  4. FAMOTIDINE [Concomitant]
     Dosage: 40 MG, UNK
     Route: 048
     Dates: start: 20070125
  5. CIPROFLOXACIN [Concomitant]
     Dosage: 500 MG, UNK
     Dates: start: 20070125
  6. IBUPROFEN [Concomitant]
     Dosage: 800 MG, UNK
     Route: 048
     Dates: start: 20060827
  7. YAZ [Suspect]
     Indication: ORAL CONTRACEPTION
     Dosage: UNK
     Route: 048
     Dates: start: 20100801, end: 20100801
  8. FLUCONAZOLE [Concomitant]
     Dosage: 200 MG, UNK
     Route: 048
     Dates: start: 20060425
  9. METRONIDAZOLE [Concomitant]
     Dosage: 250 MG, UNK
     Route: 048
     Dates: start: 20070129
  10. TETRACYCLINE [Concomitant]
     Dosage: 250 MG, UNK
     Dates: start: 20070129
  11. YASMIN [Suspect]
     Indication: ORAL CONTRACEPTION
     Route: 048
     Dates: start: 20041101, end: 20090101
  12. HYDROCODONE BITARTRATE AND ACETAMINOPHEN [Concomitant]
     Dosage: UNK
     Route: 048
     Dates: start: 20070125
  13. INDERAL [Concomitant]
  14. SULFAMETHOXAZOLE TRIMETHOPRIM [Concomitant]
     Dosage: UNK
     Route: 048
     Dates: start: 20060420
  15. AZITHROMYCIN [Concomitant]
     Dosage: 250 MG, UNK
     Route: 048
     Dates: start: 20060827
  16. AMOXICILLIN W/CLAVULANIC ACID [Concomitant]
     Dosage: UNK
     Route: 048
     Dates: start: 20060903
  17. OMEPRAZOLE [Concomitant]
     Dosage: 20 MG, UNK
     Dates: start: 20070129
  18. PROCHLORPERAZINE TAB [Concomitant]
  19. PROMETHAZINE [Concomitant]
     Dosage: 25 MG, UNK
     Route: 048
     Dates: start: 20070125
  20. PENICILLIN VK [Concomitant]
     Dosage: 500 MG, UNK
     Dates: start: 20081028
  21. NAPROXEN (ALEVE) [Concomitant]
     Indication: ANALGESIC THERAPY
  22. PLAN B [Concomitant]
     Dosage: 0.75 MG, UNK
     Route: 048
     Dates: start: 20060715
  23. BISMUTH [Concomitant]
     Dosage: UNK
     Dates: start: 20070129

REACTIONS (4)
  - CHOLELITHIASIS [None]
  - PULMONARY EMBOLISM [None]
  - CHOLECYSTITIS CHRONIC [None]
  - CEREBROVASCULAR ACCIDENT [None]
